FAERS Safety Report 12646414 (Version 1)
Quarter: 2016Q3

REPORT INFORMATION
  Report Type: Other
  Country: IT (occurrence: IT)
  Receive Date: 20160812
  Receipt Date: 20160812
  Transmission Date: 20161109
  Serious: Yes (Death)
  Sender: FDA-Public Use
  Company Number: IT-HETERO LABS LTD-1056220

PATIENT
  Age: 75 Year
  Sex: Female

DRUGS (4)
  1. NOREPINEPHRINE [Concomitant]
     Active Substance: NOREPINEPHRINE\NOREPINEPHRINE BITARTRATE
  2. NORMAL SALINE AND 5 % DEXTROSE SOLUTION [Concomitant]
  3. LITHIUM. [Suspect]
     Active Substance: LITHIUM
  4. DIGOXIN. [Concomitant]
     Active Substance: DIGOXIN

REACTIONS (5)
  - Accidental overdose [Unknown]
  - Cardio-respiratory arrest [Fatal]
  - Toxicity to various agents [Unknown]
  - Nephrogenic diabetes insipidus [Unknown]
  - Osmotic demyelination syndrome [Unknown]
